FAERS Safety Report 8865735 (Version 1)
Quarter: 2012Q4

REPORT INFORMATION
  Report Type: 
  Country: US (occurrence: US)
  Receive Date: 20121024
  Receipt Date: 20121024
  Transmission Date: 20130627
  Serious: Yes (Other)
  Sender: FDA-Public Use
  Company Number: US-AMGEN-USASP2012002960

PATIENT
  Age: 74 Year
  Sex: Female
  Weight: 80.27 kg

DRUGS (1)
  1. ENBREL [Suspect]
     Indication: RHEUMATOID ARTHRITIS
     Dosage: 25 mg, 2 times/wk
     Route: 058
     Dates: start: 19991012

REACTIONS (5)
  - Angioedema [Recovered/Resolved]
  - Stress [Unknown]
  - Food allergy [Unknown]
  - Pain [Not Recovered/Not Resolved]
  - Injection site pain [Recovered/Resolved]
